FAERS Safety Report 8827702 (Version 1)
Quarter: 2012Q4

REPORT INFORMATION
  Report Type: 
  Country: JP (occurrence: JP)
  Receive Date: 20121005
  Receipt Date: 20121005
  Transmission Date: 20130627
  Serious: Yes (Other)
  Sender: FDA-Public Use
  Company Number: JP-ASTRAZENECA-2012SE75186

PATIENT
  Age: 37 Year
  Sex: Male
  Weight: 61.5 kg

DRUGS (5)
  1. DIPRIVAN [Suspect]
     Indication: INDUCTION OF ANAESTHESIA
     Dosage: Dose unknown
     Route: 042
  2. REMIFENTANIL HYDROCHLORIDE [Suspect]
     Indication: INDUCTION OF ANAESTHESIA
     Dosage: Dose unknown
     Route: 042
  3. ROCURONIUM BROMIDE [Suspect]
     Indication: INDUCTION OF ANAESTHESIA
     Dosage: Dose unknown
     Route: 042
  4. DEXMEDETOMIDINE HYDROCHLORIDE [Suspect]
     Indication: SEDATION
     Dosage: Dose unknown
     Route: 065
  5. MIDAZOLAM [Suspect]
     Indication: SEDATION
     Dosage: Dose unknown
     Route: 065

REACTIONS (1)
  - Sedation [Recovered/Resolved]
